FAERS Safety Report 7364758-4 (Version None)
Quarter: 2011Q1

REPORT INFORMATION
  Report Type: 
  Country: None (occurrence: None)
  Receive Date: 20110316
  Receipt Date: 20110316
  Transmission Date: 20110831
  Serious: Yes (Hospitalization)
  Sender: FDA-Public Use
  Company Number: None

PATIENT
  Age: 38 Year
  Sex: Female
  Weight: 70.3075 kg

DRUGS (17)
  1. METOCLOPRAMIDE [Concomitant]
  2. IXEMPRA KIT [Suspect]
     Indication: BREAST CANCER
     Dosage: 40MG/M2 INTRAVENOUS
     Route: 042
     Dates: start: 20101221, end: 20110111
  3. ACETAMINOPHEN W/ CODEINE [Concomitant]
  4. ATENOLOL [Concomitant]
  5. ESOMEPRAZOLE MAGNESIUM [Concomitant]
  6. APREPITANT [Concomitant]
  7. LISINOPRIL [Concomitant]
  8. ADRIAMYCIN PFS [Suspect]
     Indication: BREAST CANCER
     Dosage: 60MG/M2
     Dates: start: 20100928, end: 20101201
  9. CYTOXAN [Suspect]
     Indication: BREAST CANCER
     Dosage: 600MG/M2
     Dates: start: 20100928, end: 20101201
  10. ATIVAN [Concomitant]
  11. CARAFATE [Concomitant]
  12. ALLEGRA D 24 HOUR [Concomitant]
  13. RANITIDINE [Concomitant]
  14. TRAMADOL [Concomitant]
  15. VERAPAMIL [Concomitant]
  16. AMBIEN [Concomitant]
  17. METFORMIN [Concomitant]

REACTIONS (9)
  - DEHYDRATION [None]
  - VOMITING [None]
  - DIARRHOEA [None]
  - ABDOMINAL PAIN UPPER [None]
  - MALAISE [None]
  - NAUSEA [None]
  - PYREXIA [None]
  - HYPOPHAGIA [None]
  - FANCONI SYNDROME [None]
